APPROVED DRUG PRODUCT: DIPHENOXYLATE HYDROCHLORIDE AND ATROPINE SULFATE
Active Ingredient: ATROPINE SULFATE; DIPHENOXYLATE HYDROCHLORIDE
Strength: 0.025MG/5ML;2.5MG/5ML
Dosage Form/Route: SOLUTION;ORAL
Application: A087708 | Product #001
Applicant: HIKMA PHARMACEUTICALS USA INC
Approved: May 3, 1982 | RLD: Yes | RS: Yes | Type: RX